FAERS Safety Report 8492551-8 (Version None)
Quarter: 2012Q3

REPORT INFORMATION
  Report Type: 
  Country: None (occurrence: None)
  Receive Date: 20120706
  Receipt Date: 20120627
  Transmission Date: 20120928
  Serious: Yes (Life-Threatening, Hospitalization)
  Sender: FDA-Public Use
  Company Number: JP-ROCHE-652275

PATIENT
  Sex: Female
  Weight: 56 kg

DRUGS (12)
  1. ACTEMRA [Suspect]
     Route: 041
     Dates: start: 20091120, end: 20110207
  2. METHOTREXATE [Suspect]
     Dosage: FORM: PERORAL AGENT
     Route: 048
     Dates: start: 20080314, end: 20080515
  3. LOXONIN [Concomitant]
     Route: 048
  4. MUCOSTA [Concomitant]
     Route: 048
  5. OMEPRAZOLE [Concomitant]
     Dosage: FORM: ENTERIC COATING DRUG
     Route: 048
  6. PREDNISOLONE [Suspect]
     Indication: RHEUMATOID ARTHRITIS
     Route: 048
  7. RISEDRONATE SODIUM [Concomitant]
     Route: 048
  8. METHOTREXATE [Suspect]
     Indication: RHEUMATOID ARTHRITIS
     Dosage: FORM: PERORAL AGENT
     Route: 048
     Dates: start: 20070101, end: 20080314
  9. ACTEMRA [Suspect]
     Route: 041
     Dates: start: 20110601, end: 20110601
  10. METHOTREXATE [Suspect]
     Dosage: FORM: PERORAL AGENT
     Route: 048
  11. ACTEMRA [Suspect]
     Indication: RHEUMATOID ARTHRITIS
     Route: 041
     Dates: start: 20090721, end: 20090721
  12. ACTEMRA [Suspect]
     Route: 041
     Dates: start: 20110415, end: 20110415

REACTIONS (4)
  - PNEUMOCYSTIS JIROVECI PNEUMONIA [None]
  - DIARRHOEA [None]
  - INTERSTITIAL LUNG DISEASE [None]
  - PNEUMONIA PNEUMOCOCCAL [None]
